FAERS Safety Report 12650063 (Version 2)
Quarter: 2017Q1

REPORT INFORMATION
  Report Type: Report from Study
  Country: CA (occurrence: CA)
  Receive Date: 20160813
  Receipt Date: 20170203
  Transmission Date: 20170428
  Serious: Yes (Other)
  Sender: FDA-Public Use
  Company Number: CA-AMGEN-CANSL2016104264

PATIENT
  Age: 75 Year
  Sex: Female

DRUGS (1)
  1. PROLIA [Suspect]
     Active Substance: DENOSUMAB
     Indication: PRODUCT USED FOR UNKNOWN INDICATION
     Dosage: UNK
     Route: 065
     Dates: start: 20150731

REACTIONS (6)
  - Mobility decreased [Unknown]
  - Drug administration error [Unknown]
  - Gait disturbance [Unknown]
  - Knee arthroplasty [Unknown]
  - Arthropathy [Unknown]
  - Arthralgia [Unknown]
